FAERS Safety Report 14728010 (Version 2)
Quarter: 2018Q2

REPORT INFORMATION
  Report Type: Spontaneous
  Country: FR (occurrence: FR)
  Receive Date: 20180406
  Receipt Date: 20180419
  Transmission Date: 20180711
  Serious: Yes (Hospitalization, Disabling)
  Sender: FDA-Public Use
  Company Number: FR-PFIZER INC-2018140262

PATIENT
  Sex: Male

DRUGS (25)
  1. METFORMIN [Concomitant]
     Active Substance: METFORMIN HYDROCHLORIDE
     Dosage: UNK
     Dates: start: 200808
  2. TAHOR [Concomitant]
     Active Substance: ATORVASTATIN CALCIUM
     Dosage: UNK
     Dates: start: 200711
  3. SPIRONOLACTONE. [Concomitant]
     Active Substance: SPIRONOLACTONE
     Dosage: UNK
     Dates: start: 200806
  4. COUMADINE [Concomitant]
     Active Substance: WARFARIN SODIUM
     Dosage: UNK
     Dates: start: 2008
  5. ADCIRCA [Concomitant]
     Active Substance: TADALAFIL
     Dosage: UNK
     Dates: start: 20180117
  6. ESIDREX [Concomitant]
     Active Substance: HYDROCHLOROTHIAZIDE
     Dosage: UNK
     Dates: start: 20180117
  7. KERLONE [Concomitant]
     Active Substance: BETAXOLOL HYDROCHLORIDE
     Dosage: UNK
  8. FUROSEMIDE. [Concomitant]
     Active Substance: FUROSEMIDE
     Dosage: UNK
     Dates: start: 20180117
  9. COVERSYL [Concomitant]
     Active Substance: PERINDOPRIL
     Dosage: UNK
     Dates: start: 200808
  10. NOVONORM [Concomitant]
     Active Substance: REPAGLINIDE
     Dosage: UNK
     Dates: start: 200804
  11. NAFTIDROFURYL [Concomitant]
     Active Substance: NAFRONYL
     Dosage: UNK
  12. OMEPRAZOLE. [Concomitant]
     Active Substance: OMEPRAZOLE
     Dosage: UNK
  13. DIAMICRON [Concomitant]
     Active Substance: GLICLAZIDE
     Dosage: UNK
     Dates: start: 200808
  14. DIFFU K [Concomitant]
     Active Substance: POTASSIUM CHLORIDE
     Dosage: UNK
     Dates: start: 20180117
  15. GLUCOR [Concomitant]
     Active Substance: ACARBOSE
     Dosage: UNK
     Dates: start: 2003
  16. RAMIPRIL. [Concomitant]
     Active Substance: RAMIPRIL
     Dosage: UNK
     Dates: start: 20180117
  17. NOVOMIX 30 [Concomitant]
     Active Substance: INSULIN ASPART
     Dosage: UNK
     Dates: start: 20180117
  18. AMIODARONE HCL [Suspect]
     Active Substance: AMIODARONE HYDROCHLORIDE
     Indication: ATRIAL FIBRILLATION
     Dosage: 1 DF, UNK (FREQUENCY 5DAYS/7))
     Dates: start: 2006, end: 2009
  19. ACOMPLIA [Suspect]
     Active Substance: RIMONABANT
     Indication: OBESITY
     Dosage: 20 MG, DAILY
     Route: 048
     Dates: start: 200707, end: 20090209
  20. FORADIL [Concomitant]
     Active Substance: FORMOTEROL FUMARATE
     Dosage: UNK
     Dates: start: 20180117
  21. LANSOPRAZOLE. [Concomitant]
     Active Substance: LANSOPRAZOLE
     Dosage: UNK
     Dates: start: 20180117
  22. MIFLASONE [Concomitant]
     Active Substance: BECLOMETHASONE DIPROPIONATE
     Dosage: UNK
     Dates: start: 20180117
  23. NOVOMIX 50 [Concomitant]
     Active Substance: INSULIN ASPART
     Dosage: UNK
     Dates: start: 20180117
  24. CORTANCYL [Concomitant]
     Active Substance: PREDNISONE
     Dosage: UNK
  25. HYDROCORTISONE. [Concomitant]
     Active Substance: HYDROCORTISONE
     Dosage: UNK
     Dates: start: 20180117

REACTIONS (7)
  - Pain in extremity [Not Recovered/Not Resolved]
  - Oedema peripheral [Unknown]
  - Right ventricular dysfunction [Unknown]
  - Fibrosis [Not Recovered/Not Resolved]
  - Oedema peripheral [Not Recovered/Not Resolved]
  - Pulmonary hypertension [Unknown]
  - Back pain [Unknown]

NARRATIVE: CASE EVENT DATE: 200806
